FAERS Safety Report 7601452-6 (Version None)
Quarter: 2011Q3

REPORT INFORMATION
  Report Type: 
  Country: None (occurrence: None)
  Receive Date: 20110711
  Receipt Date: 20110630
  Transmission Date: 20111222
  Serious: Yes (Hospitalization)
  Sender: FDA-Public Use
  Company Number: TR-US-EMD SERONO, INC.-7062953

PATIENT
  Sex: Male
  Weight: 53 kg

DRUGS (9)
  1. RIOKSEL [Concomitant]
  2. ZOPROL [Concomitant]
  3. SUSKALIN [Concomitant]
  4. ESCITALOPRAM [Concomitant]
  5. REBIF [Suspect]
     Indication: RELAPSING-REMITTING MULTIPLE SCLEROSIS
     Route: 058
     Dates: start: 20040101, end: 20110101
  6. ENDOL [Concomitant]
  7. CALCIUM CARBONATE [Concomitant]
  8. REOUIP [Concomitant]
  9. LEVONTRION [Concomitant]

REACTIONS (1)
  - PULMONARY TUBERCULOSIS [None]
